FAERS Safety Report 10516165 (Version 1)
Quarter: 2014Q3

REPORT INFORMATION
  Report Type: Spontaneous
  Country: US (occurrence: None)
  Receive Date: 20140926
  Receipt Date: 20140926
  Transmission Date: 20150326
  Serious: No
  Sender: FDA-Public Use
  Company Number: 1000069649

PATIENT
  Age: 72 Year
  Sex: Female

DRUGS (8)
  1. MILK OF MAGNESIA [Suspect]
     Active Substance: MAGNESIUM HYDROXIDE
     Indication: CONSTIPATION
  2. PROVIGIL(MODAFINIL) [Concomitant]
  3. THYROID PILL NOS [Concomitant]
  4. VALTREX(VALACICLOVIR HYDROCHLORIDE) [Concomitant]
  5. LINZESS [Suspect]
     Active Substance: LINACLOTIDE
     Indication: CONSTIPATION
     Route: 048
     Dates: start: 20140725
  6. LAMICTAL(LAMOTRIGINE) [Concomitant]
  7. MIRALAX [Suspect]
     Active Substance: POLYETHYLENE GLYCOL 3350
     Indication: CONSTIPATION
  8. CYMBALTA(DULOXETINE HYDROCHLORIDE) [Concomitant]

REACTIONS (2)
  - Fatigue [None]
  - Diarrhoea [None]

NARRATIVE: CASE EVENT DATE: 2014
